FAERS Safety Report 24361667 (Version 1)
Quarter: 2024Q3

REPORT INFORMATION
  Report Type: Spontaneous
  Country: CA (occurrence: CA)
  Receive Date: 20240925
  Receipt Date: 20240925
  Transmission Date: 20241016
  Serious: Yes (Other)
  Sender: BAYER
  Company Number: CA-BAYER-2024A135841

PATIENT
  Age: 32 Year
  Sex: Female

DRUGS (1)
  1. MIRENA [Suspect]
     Active Substance: LEVONORGESTREL
     Dosage: 20?G/DAY
     Route: 015
     Dates: end: 20140712

REACTIONS (3)
  - Device dislocation [Recovered/Resolved]
  - Abdominal pain lower [None]
  - Gastrointestinal oedema [None]

NARRATIVE: CASE EVENT DATE: 20140711
